FAERS Safety Report 17453911 (Version 1)
Quarter: 2020Q1

REPORT INFORMATION
  Report Type: Spontaneous
  Country: US (occurrence: US)
  Receive Date: 20200224
  Receipt Date: 20200224
  Transmission Date: 20200409
  Serious: Yes (Hospitalization, Other)
  Sender: FDA-Public Use
  Company Number: US-JAZZ-2014-US-003823

PATIENT
  Age: 43 Year
  Sex: Female

DRUGS (3)
  1. XYREM [Suspect]
     Active Substance: SODIUM OXYBATE
     Dosage: 5.25 G, BID
     Route: 048
     Dates: start: 2014
  2. XYREM [Suspect]
     Active Substance: SODIUM OXYBATE
     Indication: NARCOLEPSY
     Dosage: 3 G, BID
     Route: 048
     Dates: start: 201312, end: 201401
  3. XYREM [Suspect]
     Active Substance: SODIUM OXYBATE
     Indication: CATAPLEXY
     Dosage: DOSE ADUSTMENTS
     Route: 048

REACTIONS (9)
  - Fibromyalgia [Unknown]
  - Weight increased [Not Recovered/Not Resolved]
  - Pyrexia [Recovered/Resolved]
  - Delayed sleep phase [Not Recovered/Not Resolved]
  - Paraesthesia [Unknown]
  - Urethral stenosis [Not Recovered/Not Resolved]
  - Lyme disease [Recovering/Resolving]
  - Pollakiuria [Recovered/Resolved]
  - Condition aggravated [Not Recovered/Not Resolved]

NARRATIVE: CASE EVENT DATE: 20140206
